FAERS Safety Report 9802483 (Version 2)
Quarter: 2014Q1

REPORT INFORMATION
  Report Type: Report from Study
  Country: US (occurrence: US)
  Receive Date: 20140107
  Receipt Date: 20140107
  Transmission Date: 20141002
  Serious: Yes (Other)
  Sender: FDA-Public Use
  Company Number: PHHY2013US084198

PATIENT
  Age: 49 Year
  Sex: Female
  Weight: 81.18 kg

DRUGS (15)
  1. GILENYA [Suspect]
     Indication: RELAPSING-REMITTING MULTIPLE SCLEROSIS
     Dosage: 0.5 MG, QD
     Route: 048
     Dates: start: 201206
  2. GILENYA [Suspect]
     Dosage: 0.5 MG, QOD
     Route: 048
     Dates: start: 201302
  3. GABAPENTIN [Concomitant]
     Dosage: 300 MG, UNK
  4. DIAZEPAM [Concomitant]
     Dosage: 2 MG, TID
     Route: 048
  5. BACLOFEN [Concomitant]
     Dosage: 20 MG, UNK
  6. AMANTADINE [Concomitant]
     Dosage: 100 MG, UNK
  7. GLYCOPYRROLATE [Concomitant]
     Dosage: 1 MG, UNK
  8. VITAMIN D3 [Concomitant]
     Dosage: 2000 IU, UNK
  9. ZEGERID [Concomitant]
  10. TEMAZEPAM [Concomitant]
     Dosage: 7.5 MG, UNK
  11. PREMPRO [Concomitant]
  12. VITAMIN B12 [Concomitant]
     Dosage: 1000 UG, UNK
  13. LOVASTATIN [Concomitant]
     Dosage: 10 MG, UNK
  14. CITALOPRAM [Concomitant]
     Dosage: 10 MG, UNK
  15. ALEVE [Concomitant]
     Dosage: 220 MG, UNK

REACTIONS (18)
  - Central nervous system lesion [Recovering/Resolving]
  - Hypertension [Unknown]
  - Leukopenia [Unknown]
  - Lymphopenia [Recovering/Resolving]
  - Monocyte percentage increased [Unknown]
  - Vertigo [Recovering/Resolving]
  - Weight increased [Unknown]
  - Insomnia [Unknown]
  - Affective disorder [Recovering/Resolving]
  - Hyperacusis [Unknown]
  - Restless legs syndrome [Unknown]
  - Vitamin D deficiency [Unknown]
  - Anxiety disorder due to a general medical condition [Unknown]
  - Optic neuropathy [Unknown]
  - Vestibular disorder [Unknown]
  - Migraine [Recovering/Resolving]
  - Labyrinthitis [Unknown]
  - Prescribed underdose [Unknown]
